FAERS Safety Report 11841578 (Version 2)
Quarter: 2016Q1

REPORT INFORMATION
  Report Type: Spontaneous
  Country: US (occurrence: US)
  Receive Date: 20151216
  Receipt Date: 20160302
  Transmission Date: 20160526
  Serious: No
  Sender: FDA-Public Use
  Company Number: US-LEO PHARMA-239057

PATIENT
  Age: 52 Year
  Sex: Male

DRUGS (2)
  1. PICATO [Suspect]
     Active Substance: INGENOL MEBUTATE
     Indication: ACTINIC KERATOSIS
     Dates: start: 20151130, end: 20151202
  2. PICATO [Suspect]
     Active Substance: INGENOL MEBUTATE

REACTIONS (5)
  - Application site dryness [Recovered/Resolved]
  - Application site erythema [Recovered/Resolved]
  - Inappropriate schedule of drug administration [Unknown]
  - Application site exfoliation [Recovered/Resolved]
  - Application site pruritus [Recovered/Resolved]

NARRATIVE: CASE EVENT DATE: 20151130
